FAERS Safety Report 10384043 (Version 2)
Quarter: 2014Q3

REPORT INFORMATION
  Report Type: Spontaneous
  Country: ES (occurrence: ES)
  Receive Date: 20140814
  Receipt Date: 20140827
  Transmission Date: 20150326
  Serious: Yes (Other)
  Sender: FDA-Public Use
  Company Number: PHHY2014ES099902

PATIENT
  Age: 77 Year
  Sex: Female

DRUGS (8)
  1. ACLASTA [Suspect]
     Active Substance: ZOLEDRONIC ACID
     Indication: OSTEOPOROSIS
     Dosage: 5 MG, ANNUALLY
     Route: 042
  2. METFORMIN [Concomitant]
     Active Substance: METFORMIN HYDROCHLORIDE
  3. OMEPRAZOLE. [Concomitant]
     Active Substance: OMEPRAZOLE
  4. FOSAVANCE [Suspect]
     Active Substance: ALENDRONATE SODIUM\CHOLECALCIFEROL
     Indication: FIBROMYALGIA
  5. FOSAVANCE [Suspect]
     Active Substance: ALENDRONATE SODIUM\CHOLECALCIFEROL
     Indication: OSTEOPOROSIS
     Dosage: 30.380 MG, WEEKLY
  6. PREDNISONE. [Concomitant]
     Active Substance: PREDNISONE
     Dosage: 7.5 MG,
  7. MANIDIPINE [Concomitant]
     Active Substance: MANIDIPINE
  8. ACLASTA [Suspect]
     Active Substance: ZOLEDRONIC ACID
     Indication: FIBROMYALGIA

REACTIONS (7)
  - Pain [Recovered/Resolved]
  - Haemorrhage [Recovered/Resolved]
  - Bone loss [Recovered/Resolved]
  - Dysaesthesia [Recovered/Resolved]
  - Osteonecrosis of jaw [Recovered/Resolved]
  - Mouth ulceration [Recovered/Resolved]
  - Gingivitis [Recovered/Resolved]
